FAERS Safety Report 6385425-X (Version None)
Quarter: 2009Q4

REPORT INFORMATION
  Report Type: 
  Country: None (occurrence: None)
  Receive Date: 20091002
  Receipt Date: 20080820
  Transmission Date: 20100525
  Serious: No
  Sender: FDA-Public Use
  Company Number: US-ASTRAZENECA-2008UW17481

PATIENT
  Age: 54 Year
  Sex: Female

DRUGS (3)
  1. ARIMIDEX [Suspect]
     Indication: BREAST CANCER FEMALE
     Route: 048
     Dates: start: 20030201
  2. PREVACID [Concomitant]
  3. ASACOL [Concomitant]

REACTIONS (2)
  - FALL [None]
  - WRIST FRACTURE [None]
